FAERS Safety Report 8564642-4 (Version None)
Quarter: 2012Q3

REPORT INFORMATION
  Report Type: 
  Country: None (occurrence: None)
  Receive Date: 20120727
  Receipt Date: 20120727
  Transmission Date: 20120928
  Serious: Yes (Death, Congenital Anomaly)
  Sender: FDA-Public Use
  Company Number: None

PATIENT
  Age: 1 Day
  Sex: Male
  Weight: 0.045 kg

DRUGS (1)
  1. MYCOPHENOLATE MOFETIL [Suspect]

REACTIONS (4)
  - MATERNAL DRUGS AFFECTING FOETUS [None]
  - TRACHEAL STENOSIS [None]
  - EAR MALFORMATION [None]
  - CLEFT PALATE [None]
